FAERS Safety Report 14639912 (Version 1)
Quarter: 2018Q1

REPORT INFORMATION
  Report Type: Report from Study
  Country: HU (occurrence: HU)
  Receive Date: 20180315
  Receipt Date: 20180315
  Transmission Date: 20180509
  Serious: Yes (Hospitalization, Other)
  Sender: FDA-Public Use
  Company Number: HU-ROCHE-1803320

PATIENT
  Age: 51 Year
  Sex: Female

DRUGS (3)
  1. ZELBORAF [Suspect]
     Active Substance: VEMURAFENIB
     Indication: MALIGNANT MELANOMA
     Route: 048
     Dates: start: 20150219
  2. COTELLIC [Suspect]
     Active Substance: COBIMETINIB
     Route: 048
     Dates: start: 2017, end: 20180102
  3. COTELLIC [Suspect]
     Active Substance: COBIMETINIB
     Indication: METASTATIC MALIGNANT MELANOMA
     Route: 048
     Dates: start: 20160208, end: 20170523

REACTIONS (10)
  - Dyspnoea [Recovered/Resolved]
  - Diarrhoea [Recovered/Resolved]
  - Dry skin [Recovering/Resolving]
  - Sunburn [Recovered/Resolved]
  - Cardiac failure [Unknown]
  - Rash pruritic [Recovered/Resolved]
  - Cardiac valve disease [Not Recovered/Not Resolved]
  - Iron deficiency anaemia [Recovered/Resolved]
  - Acne [Recovered/Resolved]
  - Radiation injury [Recovered/Resolved]

NARRATIVE: CASE EVENT DATE: 20160722
